FAERS Safety Report 20035692 (Version 2)
Quarter: 2021Q4

REPORT INFORMATION
  Report Type: Spontaneous
  Country: US (occurrence: US)
  Receive Date: 20211104
  Receipt Date: 20211117
  Transmission Date: 20220303
  Serious: Yes (Hospitalization)
  Sender: FDA-Public Use
  Company Number: US-TEVA-2021-US-1972746

PATIENT
  Age: 56 Year
  Sex: Male

DRUGS (1)
  1. SIMVASTATIN [Suspect]
     Active Substance: SIMVASTATIN
     Indication: Product used for unknown indication
     Route: 065

REACTIONS (9)
  - Immune-mediated myositis [Recovering/Resolving]
  - Myositis [Recovering/Resolving]
  - Rhabdomyolysis [Recovering/Resolving]
  - Renal impairment [Recovering/Resolving]
  - Respiratory failure [Recovering/Resolving]
  - Respiratory failure [Recovering/Resolving]
  - Muscular weakness [Recovering/Resolving]
  - Diaphragm muscle weakness [Recovering/Resolving]
  - Pneumonia aspiration [Recovering/Resolving]
